FAERS Safety Report 7278017-1 (Version None)
Quarter: 2011Q1

REPORT INFORMATION
  Report Type: 
  Country: None (occurrence: None)
  Receive Date: 20110207
  Receipt Date: 20110127
  Transmission Date: 20110831
  Serious: Yes (Other)
  Sender: FDA-Public Use
  Company Number: US-RB-019068-11

PATIENT
  Age: 77 Year
  Sex: Female

DRUGS (12)
  1. MICRO-K [Concomitant]
  2. ADVAIR DISKUS 100/50 [Concomitant]
  3. NASACORT [Concomitant]
  4. VENTOLIN [Concomitant]
  5. NAPROXEN [Concomitant]
  6. MUCINEX [Suspect]
     Indication: NASOPHARYNGITIS
     Route: 048
  7. ALBUTEROL SULFATE [Concomitant]
  8. ASTELIN [Concomitant]
  9. LASIX [Concomitant]
  10. AVAPRO [Concomitant]
  11. SYMBICORT [Concomitant]
  12. PROVENTIL [Concomitant]

REACTIONS (6)
  - VISION BLURRED [None]
  - FEELING ABNORMAL [None]
  - DIZZINESS [None]
  - HALLUCINATION [None]
  - GAIT DISTURBANCE [None]
  - NIGHTMARE [None]
